FAERS Safety Report 6382847-8 (Version None)
Quarter: 2009Q3

REPORT INFORMATION
  Report Type: 
  Country: None (occurrence: None)
  Receive Date: 20090930
  Receipt Date: 20090924
  Transmission Date: 20100115
  Serious: Yes (Death, Life-Threatening)
  Sender: FDA-Public Use
  Company Number: GR-WYE-G04497509

PATIENT
  Age: 41 Year
  Sex: Female

DRUGS (3)
  1. RAPAMUNE [Suspect]
     Indication: TUBEROUS SCLEROSIS
     Dosage: 4 MG DAILY
     Route: 048
     Dates: start: 20080501
  2. GARDENAL [Concomitant]
     Indication: EPILEPSY
  3. TEGRETOL [Concomitant]
     Indication: EPILEPSY

REACTIONS (2)
  - CARDIAC ARREST [None]
  - FEBRILE INFECTION [None]
